FAERS Safety Report 10852866 (Version 2)
Quarter: 2015Q1

REPORT INFORMATION
  Report Type: Spontaneous
  Country: US (occurrence: US)
  Receive Date: 20150222
  Receipt Date: 20150222
  Transmission Date: 20150721
  Serious: No
  Sender: FDA-Public Use
  Company Number: US-ALLERGAN-1408775US

PATIENT
  Age: 67 Year
  Sex: Female

DRUGS (5)
  1. LEVOTHYROXINE [Concomitant]
     Active Substance: LEVOTHYROXINE
     Dosage: 25 ?G, UNK
  2. BOTOX COSMETIC [Suspect]
     Active Substance: ONABOTULINUMTOXINA
     Indication: SKIN WRINKLING
     Dosage: 10 UNITS, SINGLE
     Route: 030
     Dates: start: 20140321, end: 20140321
  3. JUVEDERM VOLUMA XC [Suspect]
     Active Substance: HYALURONIC ACID\LIDOCAINE HYDROCHLORIDE
     Indication: SKIN WRINKLING
  4. JUVEDERM ULTRA PLUS [Suspect]
     Active Substance: HYALURONIC ACID\LIDOCAINE HYDROCHLORIDE
     Indication: SKIN WRINKLING
     Dosage: UNK
  5. BUPROPION [Concomitant]
     Active Substance: BUPROPION
     Dosage: 75 MG, UNK

REACTIONS (1)
  - Eyelid ptosis [Recovered/Resolved]
